FAERS Safety Report 23493507 (Version 1)
Quarter: 2024Q1

REPORT INFORMATION
  Report Type: Spontaneous
  Country: US (occurrence: None)
  Receive Date: 20240206
  Receipt Date: 20240206
  Transmission Date: 20240410
  Serious: Yes (Disabling, Other)
  Sender: FDA-Public Use
  Company Number: None

PATIENT
  Age: 15 Year
  Sex: Male
  Weight: 63 kg

DRUGS (5)
  1. ISOTRETINOIN [Suspect]
     Active Substance: ISOTRETINOIN
     Indication: Acne
     Dosage: FREQUENCY : DAILY;?
     Route: 048
     Dates: start: 20231012, end: 20240128
  2. CYCLOSPORINE [Concomitant]
     Active Substance: CYCLOSPORINE
  3. AUGMENTIN [Concomitant]
     Active Substance: AMOXICILLIN\CLAVULANATE POTASSIUM
  4. PREDNISONE [Concomitant]
     Active Substance: PREDNISONE
  5. VITAMIN E [Concomitant]
     Active Substance: .ALPHA.-TOCOPHEROL

REACTIONS (1)
  - Acne fulminans [None]

NARRATIVE: CASE EVENT DATE: 20231017
